FAERS Safety Report 6660409-2 (Version None)
Quarter: 2010Q1

REPORT INFORMATION
  Report Type: 
  Country: None (occurrence: None)
  Receive Date: 20100331
  Receipt Date: 20100318
  Transmission Date: 20100710
  Serious: Yes (Other)
  Sender: FDA-Public Use
  Company Number: JP-JNJFOC-20100304436

PATIENT
  Sex: Female

DRUGS (6)
  1. CRAVIT [Suspect]
     Indication: BRONCHITIS
     Route: 048
  2. DASEN [Concomitant]
     Indication: BRONCHITIS
     Route: 048
  3. MUCODYNE [Concomitant]
     Indication: BRONCHITIS
     Route: 048
  4. MUCOSTA [Concomitant]
     Indication: BRONCHITIS
     Route: 048
  5. COLDRIN [Concomitant]
     Indication: BRONCHITIS
     Route: 048
  6. ISODINE GARGLE [Concomitant]
     Indication: BRONCHITIS
     Route: 050

REACTIONS (1)
  - ANAPHYLACTOID SHOCK [None]
